FAERS Safety Report 6828976-3 (Version None)
Quarter: 2010Q3

REPORT INFORMATION
  Report Type: 
  Country: None (occurrence: None)
  Receive Date: 20100709
  Receipt Date: 20070225
  Transmission Date: 20110219
  Serious: No
  Sender: FDA-Public Use
  Company Number: US-PFIZER INC-2007015768

PATIENT
  Sex: Female
  Weight: 49.9 kg

DRUGS (5)
  1. CHANTIX [Suspect]
     Indication: SMOKING CESSATION THERAPY
     Route: 048
     Dates: start: 20070214, end: 20070224
  2. ANTIHYPERTENSIVES [Concomitant]
  3. TERIPARATIDE [Concomitant]
     Indication: OSTEOPOROSIS
  4. SPIRIVA [Concomitant]
     Indication: EMPHYSEMA
     Route: 055
  5. SEREVENT [Concomitant]
     Indication: EMPHYSEMA
     Route: 055

REACTIONS (1)
  - SLEEP DISORDER [None]
